FAERS Safety Report 8883090 (Version 1)
Quarter: 2012Q4

REPORT INFORMATION
  Report Type: 
  Country: US (occurrence: US)
  Receive Date: 20121104
  Receipt Date: 20121104
  Transmission Date: 20130627
  Serious: No
  Sender: FDA-Public Use
  Company Number: US-ASTRAZENECA-2012SE80599

PATIENT
  Sex: Male

DRUGS (3)
  1. NEXIUM [Suspect]
     Indication: GASTROOESOPHAGEAL REFLUX DISEASE
     Route: 048
     Dates: start: 20121015
  2. PREVACID [Suspect]
     Route: 065
  3. UNKOWN OTC AGENTS [Suspect]
     Route: 065

REACTIONS (2)
  - Gastrooesophageal reflux disease [Unknown]
  - Therapeutic response decreased [Unknown]
